FAERS Safety Report 13266184 (Version 5)
Quarter: 2017Q2

REPORT INFORMATION
  Report Type: Report from Study
  Country: US (occurrence: US)
  Receive Date: 20170223
  Receipt Date: 20170407
  Transmission Date: 20170830
  Serious: Yes (Hospitalization)
  Sender: FDA-Public Use
  Company Number: US-ACTELION-A-US2017-150105

PATIENT
  Age: 45 Year
  Sex: Female
  Weight: 47.17 kg

DRUGS (13)
  1. CYMBALTA [Concomitant]
     Active Substance: DULOXETINE HYDROCHLORIDE
  2. DULOXETINE. [Concomitant]
     Active Substance: DULOXETINE
  3. REVATIO [Concomitant]
     Active Substance: SILDENAFIL CITRATE
  4. SINGULAIR [Concomitant]
     Active Substance: MONTELUKAST SODIUM
  5. ESOMEPRA [Concomitant]
     Active Substance: ESOMEPRAZOLE
  6. GABAPENTIN ABC [Concomitant]
  7. OPSUMIT [Suspect]
     Active Substance: MACITENTAN
     Indication: PULMONARY HYPERTENSION
     Dosage: 10 MG, QD
     Route: 048
     Dates: start: 20160707
  8. OMEPRAZOLE. [Concomitant]
     Active Substance: OMEPRAZOLE
  9. CELLCEPT [Concomitant]
     Active Substance: MYCOPHENOLATE MOFETIL\MYCOPHENOLATE MOFETIL HYDROCHLORIDE
  10. FLUTICASONE. [Concomitant]
     Active Substance: FLUTICASONE
  11. VELETRI [Suspect]
     Active Substance: EPOPROSTENOL
     Indication: PULMONARY HYPERTENSION
     Dosage: 15 NG/KG, PER MIN
     Route: 042
  12. XARELTO [Concomitant]
     Active Substance: RIVAROXABAN
  13. HYDROCODONE BITARTRATE AND ACETAMINOPHEN [Concomitant]
     Active Substance: ACETAMINOPHEN\HYDROCODONE BITARTRATE

REACTIONS (16)
  - Weight decreased [Unknown]
  - Influenza [Unknown]
  - Chest pain [Unknown]
  - Drug dose omission [Recovered/Resolved]
  - Abdominal discomfort [Unknown]
  - Device dislocation [Recovered/Resolved]
  - Headache [Unknown]
  - Catheter site haemorrhage [Unknown]
  - Hot flush [Unknown]
  - Incorrect drug administration rate [Unknown]
  - Hypotension [Unknown]
  - Diarrhoea [Unknown]
  - Myocardial infarction [Unknown]
  - Nausea [Unknown]
  - Pain in jaw [Unknown]
  - Accidental overdose [Unknown]

NARRATIVE: CASE EVENT DATE: 201703
